FAERS Safety Report 5464359-9 (Version None)
Quarter: 2007Q3

REPORT INFORMATION
  Report Type: 
  Country: None (occurrence: None)
  Receive Date: 20070921
  Receipt Date: 20070912
  Transmission Date: 20080115
  Serious: Yes (Disabling)
  Sender: FDA-Public Use
  Company Number: US-MERCK-0709USA03111

PATIENT
  Age: 51 Year
  Sex: Female

DRUGS (2)
  1. ZOCOR [Suspect]
     Indication: HYPERCHOLESTEROLAEMIA
     Route: 048
     Dates: end: 20050101
  2. LIPITOR [Suspect]
     Indication: HYPERCHOLESTEROLAEMIA
     Route: 065
     Dates: end: 20050101

REACTIONS (1)
  - GLOBAL AMNESIA [None]
